FAERS Safety Report 7023181-2 (Version None)
Quarter: 2010Q3

REPORT INFORMATION
  Report Type: 
  Country: None (occurrence: None)
  Receive Date: 20100930
  Receipt Date: 20100923
  Transmission Date: 20110219
  Serious: Yes (Hospitalization)
  Sender: FDA-Public Use
  Company Number: GR-ABBOTT-05P-066-0314700-01

PATIENT
  Sex: Female
  Weight: 76 kg

DRUGS (5)
  1. HUMIRA [Suspect]
     Indication: RHEUMATOID ARTHRITIS
     Route: 058
     Dates: start: 20041005, end: 20050531
  2. METHOTREXATE [Concomitant]
     Indication: RHEUMATOID ARTHRITIS
     Dates: start: 20040301
  3. PREZOLON [Concomitant]
     Indication: RHEUMATOID ARTHRITIS
     Dates: start: 20030918
  4. NORVASC [Concomitant]
     Indication: HYPERTENSION
     Dates: start: 19980101
  5. COMMERCIAL HUMIRA [Concomitant]
     Indication: RHEUMATOID ARTHRITIS
     Route: 058
     Dates: start: 20031128

REACTIONS (2)
  - INFECTED SKIN ULCER [None]
  - PULMONARY EMBOLISM [None]
